FAERS Safety Report 23069563 (Version 2)
Quarter: 2023Q4

REPORT INFORMATION
  Report Type: Spontaneous
  Country: US (occurrence: US)
  Receive Date: 20231016
  Receipt Date: 20231027
  Transmission Date: 20240109
  Serious: No
  Sender: FDA-Public Use
  Company Number: US-PFIZER INC-PV202300137327

PATIENT
  Age: 60 Year
  Sex: Male
  Weight: 117.93 kg

DRUGS (5)
  1. GENOTROPIN [Suspect]
     Active Substance: SOMATROPIN
     Indication: Hypopituitarism
     Dosage: 0.5 MG
  2. GENOTROPIN [Suspect]
     Active Substance: SOMATROPIN
     Dosage: 0.6 MG (6 DAYS A WEEK)
  3. GENOTROPIN [Suspect]
     Active Substance: SOMATROPIN
     Dosage: 0.6 MG, 1X/DAY (DAILY, ONCE A DAY)
     Dates: end: 202308
  4. TOPROL XL [Concomitant]
     Active Substance: METOPROLOL SUCCINATE
     Indication: Hypertension
     Dosage: UNK
  5. BENICAR [Concomitant]
     Active Substance: OLMESARTAN MEDOXOMIL
     Indication: Hypertension
     Dosage: UNK

REACTIONS (3)
  - Product prescribing error [Unknown]
  - Device power source issue [Unknown]
  - Drug dose omission by device [Unknown]
